FAERS Safety Report 6862977-4 (Version None)
Quarter: 2010Q2

REPORT INFORMATION
  Report Type: 
  Country: None (occurrence: None)
  Receive Date: 20100528
  Receipt Date: 20100326
  Transmission Date: 20101027
  Serious: No
  Sender: FDA-Public Use
  Company Number: 009403

PATIENT
  Sex: Male
  Weight: 86.3 kg

DRUGS (2)
  1. LACOSAMIDE [Suspect]
     Indication: CONVULSION
     Dosage: ORAL
     Route: 048
     Dates: start: 20090101, end: 20090101
  2. LAMICTAL [Concomitant]

REACTIONS (1)
  - VERTIGO [None]
